FAERS Safety Report 6747833-4 (Version None)
Quarter: 2010Q2

REPORT INFORMATION
  Report Type: 
  Country: None (occurrence: None)
  Receive Date: 20100528
  Receipt Date: 20100520
  Transmission Date: 20101027
  Serious: Yes (Other)
  Sender: FDA-Public Use
  Company Number: CA-ABBOTT-10P-028-0643588-00

PATIENT
  Sex: Female
  Weight: 88 kg

DRUGS (3)
  1. MAVIK [Suspect]
     Indication: ESSENTIAL HYPERTENSION
     Dosage: 1 MG DAILY
     Route: 048
     Dates: start: 20091120, end: 20100510
  2. MAVIK [Suspect]
     Dosage: 2 MG DAILY
     Dates: start: 20100510
  3. MONOCOR [Concomitant]
     Indication: DRUG USE FOR UNKNOWN INDICATION

REACTIONS (1)
  - TRANSIENT ISCHAEMIC ATTACK [None]
